FAERS Safety Report 9539660 (Version 1)
Quarter: 2013Q3

REPORT INFORMATION
  Report Type: Spontaneous
  Country: JP (occurrence: JP)
  Receive Date: 20130920
  Receipt Date: 20130920
  Transmission Date: 20140515
  Serious: Yes (Other)
  Sender: FDA-Public Use
  Company Number: PHHY2013JP104974

PATIENT
  Sex: Female

DRUGS (1)
  1. DIOVAN [Suspect]
     Indication: HYPERTROPHIC CARDIOMYOPATHY
     Dosage: 0.5 DF (10 MG DAILY)
     Route: 048

REACTIONS (6)
  - Cardiomegaly [Unknown]
  - Brain natriuretic peptide increased [Unknown]
  - Hypotension [Unknown]
  - Fatigue [Unknown]
  - Wrong technique in drug usage process [Unknown]
  - Incorrect dose administered [Unknown]
